FAERS Safety Report 6128774-2 (Version None)
Quarter: 2009Q1

REPORT INFORMATION
  Report Type: 
  Country: None (occurrence: None)
  Receive Date: 20090320
  Receipt Date: 20090311
  Transmission Date: 20090719
  Serious: Yes (Death, Other)
  Sender: FDA-Public Use
  Company Number: 2009-00829

PATIENT
  Age: 74 Year
  Sex: Male
  Weight: 63 kg

DRUGS (8)
  1. VELCADE [Suspect]
     Indication: MULTIPLE MYELOMA
     Dosage: 2.1 MG  INTRAVENOUS
     Route: 042
     Dates: start: 20081219, end: 20081226
  2. VELCADE [Suspect]
     Indication: MULTIPLE MYELOMA
     Dosage: 2.1 MG  INTRAVENOUS
     Route: 042
     Dates: start: 20090202, end: 20090212
  3. VELCADE [Suspect]
     Indication: MULTIPLE MYELOMA
     Dosage: 2.1 MG  INTRAVENOUS
     Route: 042
     Dates: start: 20090202, end: 20090212
  4. LANSOPRAZOLE [Concomitant]
  5. METHYCOBAL (MECOBALAMIN) [Concomitant]
  6. SULFAMETHOXAZOLE AND TRIMETHOPRIM [Concomitant]
  7. ITRACONAZOLE [Concomitant]
  8. FENTANYL-100 [Concomitant]

REACTIONS (11)
  - COMA HEPATIC [None]
  - HYPERAMMONAEMIA [None]
  - HYPERVENTILATION [None]
  - MALIGNANT NEOPLASM PROGRESSION [None]
  - METABOLIC ACIDOSIS [None]
  - MULTIPLE MYELOMA [None]
  - NO THERAPEUTIC RESPONSE [None]
  - PSYCHIATRIC SYMPTOM [None]
  - RESPIRATORY FAILURE [None]
  - SPEECH DISORDER [None]
  - TUMOUR LYSIS SYNDROME [None]
